FAERS Safety Report 9377748 (Version 1)
Quarter: 2013Q3

REPORT INFORMATION
  Report Type: Spontaneous
  Country: US (occurrence: US)
  Receive Date: 20130701
  Receipt Date: 20130701
  Transmission Date: 20140515
  Serious: Yes (Hospitalization, Other)
  Sender: FDA-Public Use
  Company Number: US-TEVA-415745USA

PATIENT
  Age: 28 Year
  Sex: Female

DRUGS (1)
  1. GRISEOFULVIN [Suspect]
     Route: 065

REACTIONS (2)
  - Tubulointerstitial nephritis [Recovering/Resolving]
  - Focal segmental glomerulosclerosis [Recovering/Resolving]
